FAERS Safety Report 10266299 (Version 1)
Quarter: 2014Q2

REPORT INFORMATION
  Report Type: Spontaneous
  Country: US (occurrence: US)
  Receive Date: 20140627
  Receipt Date: 20140627
  Transmission Date: 20141212
  Serious: No
  Sender: FDA-Public Use
  Company Number: US-ASTRAZENECA-2014SE21165

PATIENT
  Sex: Male

DRUGS (1)
  1. QUETIAPINE [Suspect]
     Indication: SLEEP DISORDER
     Dosage: GENERIC, 100 MG AT NIGHT
     Route: 048
     Dates: start: 201309

REACTIONS (2)
  - Blood thyroid stimulating hormone increased [Unknown]
  - Off label use [Unknown]
